FAERS Safety Report 4627042-5 (Version None)
Quarter: 2005Q2

REPORT INFORMATION
  Report Type: 
  Country: None (occurrence: None)
  Receive Date: 20050405
  Receipt Date: 20050322
  Transmission Date: 20051028
  Serious: Yes (Other)
  Sender: FDA-Public Use
  Company Number: US-KINGPHARMUSA00001-K200500421

PATIENT
  Age: 71 Year
  Sex: Female
  Weight: 73 kg

DRUGS (3)
  1. LEVOXYL [Suspect]
     Indication: HYPOTHYROIDISM
     Dosage: 50 MCG, QD
     Route: 048
     Dates: start: 20040101, end: 20050301
  2. LEVOXYL [Suspect]
     Dosage: 75 MCG, QD
     Route: 048
     Dates: start: 20050301
  3. DICYCLOMINE [Concomitant]
     Indication: DIVERTICULUM
     Dosage: UNK, PRN
     Route: 048

REACTIONS (7)
  - BRONCHITIS [None]
  - DRUG INEFFECTIVE [None]
  - HYPERSOMNIA [None]
  - INFLUENZA [None]
  - MEDICATION ERROR [None]
  - PULMONARY FIBROSIS [None]
  - THYROID FUNCTION TEST ABNORMAL [None]
